FAERS Safety Report 13950206 (Version 2)
Quarter: 2017Q4

REPORT INFORMATION
  Report Type: Report from Study
  Country: FR (occurrence: FR)
  Receive Date: 20170908
  Receipt Date: 20171205
  Transmission Date: 20180320
  Serious: Yes (Hospitalization)
  Sender: FDA-Public Use
  Company Number: PHHO2015FR014958

PATIENT
  Age: 68 Year
  Sex: Male
  Weight: 65 kg

DRUGS (6)
  1. NEORAL [Suspect]
     Active Substance: CYCLOSPORINE
     Indication: RENAL TRANSPLANT
     Dosage: 375 MG, ONCE/SINGLE
     Route: 065
     Dates: start: 20141020
  2. NEORAL [Suspect]
     Active Substance: CYCLOSPORINE
     Dosage: 350 MG, UNK
     Route: 065
     Dates: start: 20141021, end: 20141021
  3. MYCOPHENOLIC ACID. [Suspect]
     Active Substance: MYCOPHENOLIC ACID
     Indication: RENAL TRANSPLANT
     Dosage: 1440 MG, QD
     Route: 065
     Dates: start: 20141019
  4. NEORAL [Suspect]
     Active Substance: CYCLOSPORINE
     Dosage: 175 MG, ONCE/SINGLE
     Route: 065
     Dates: start: 20141022
  5. NEORAL [Suspect]
     Active Substance: CYCLOSPORINE
     Dosage: 300 MG, UNK
     Route: 065
     Dates: start: 20141023
  6. SOLUPRED [Concomitant]
     Active Substance: PREDNISOLONE
     Indication: RENAL TRANSPLANT
     Dosage: 15 MG, UNK
     Route: 065

REACTIONS (2)
  - Immunosuppressant drug level increased [Recovered/Resolved]
  - Acute kidney injury [Recovered/Resolved]

NARRATIVE: CASE EVENT DATE: 20141022
